FAERS Safety Report 8278205-1 (Version None)
Quarter: 2012Q2

REPORT INFORMATION
  Report Type: 
  Country: None (occurrence: None)
  Receive Date: 20120412
  Receipt Date: 20110726
  Transmission Date: 20120825
  Serious: No
  Sender: FDA-Public Use
  Company Number: US-ASTRAZENECA-2011SE44845

PATIENT

DRUGS (12)
  1. PRAVASTATIN SODIUM [Concomitant]
  2. PRISTIQ [Concomitant]
  3. METHYLPREDNISOLONE [Concomitant]
  4. CLONAZEPAM [Concomitant]
  5. GLYBURIDE [Concomitant]
  6. METFORMIN HCL [Concomitant]
  7. PREDNISONE TAB [Concomitant]
  8. ALENDRONATE SODIUM [Concomitant]
  9. HYOSCYAMINE [Concomitant]
  10. METOPROLOL TARTRATE [Concomitant]
  11. NEXIUM [Suspect]
     Route: 048
     Dates: start: 20110113
  12. LISINOPRIL AND HYDROCHLOROTHIAZIDE [Concomitant]

REACTIONS (4)
  - DYSPEPSIA [None]
  - GASTROOESOPHAGEAL REFLUX DISEASE [None]
  - IMPAIRED GASTRIC EMPTYING [None]
  - NAUSEA [None]
